FAERS Safety Report 4390441-3 (Version None)
Quarter: 2004Q2

REPORT INFORMATION
  Report Type: 
  Country: None (occurrence: None)
  Receive Date: 20040630
  Receipt Date: 20040615
  Transmission Date: 20050107
  Serious: Yes (Hospitalization)
  Sender: FDA-Public Use
  Company Number: US-JNJFOC-20040604220

PATIENT
  Age: 68 Year
  Sex: Male
  Weight: 70 kg

DRUGS (1)
  1. TOPAMAX [Suspect]
     Indication: CONVULSION
     Dosage: 175 MG, 2 IN 1 DAY, ORAL
     Route: 048
     Dates: end: 20040615

REACTIONS (2)
  - METABOLIC ACIDOSIS [None]
  - SALMONELLOSIS [None]
